FAERS Safety Report 5400128-3 (Version None)
Quarter: 2007Q3

REPORT INFORMATION
  Report Type: 
  Country: None (occurrence: None)
  Receive Date: 20070726
  Receipt Date: 20070726
  Transmission Date: 20080115
  Serious: Yes (Hospitalization)
  Sender: FDA-Public Use
  Company Number: None

PATIENT
  Sex: Male
  Weight: 117 kg

DRUGS (1)
  1. CYTARABINE [Suspect]
     Dosage: 41760 MG
     Dates: end: 20070702

REACTIONS (5)
  - DECREASED APPETITE [None]
  - FACIAL PAIN [None]
  - FEELING ABNORMAL [None]
  - GINGIVAL PAIN [None]
  - MUCOSAL INFLAMMATION [None]
